FAERS Safety Report 25739949 (Version 1)
Quarter: 2025Q3

REPORT INFORMATION
  Report Type: Report from Study
  Country: US (occurrence: US)
  Receive Date: 20250829
  Receipt Date: 20250829
  Transmission Date: 20251020
  Serious: Yes (Other)
  Sender: MYLAN
  Company Number: US-MYLANLABS-2025M1073871

PATIENT
  Age: 72 Year
  Sex: Male

DRUGS (12)
  1. YUPELRI [Suspect]
     Active Substance: REVEFENACIN
     Indication: Chronic obstructive pulmonary disease
     Dosage: 175 PER 3 MICROGRAM PER MILLIGRAM QD (ONCE DAILY)
     Dates: start: 20250516, end: 20250806
  2. YUPELRI [Suspect]
     Active Substance: REVEFENACIN
     Dosage: 175 PER 3 MICROGRAM PER MILLIGRAM QD (ONCE DAILY)
     Route: 055
     Dates: start: 20250516, end: 20250806
  3. YUPELRI [Suspect]
     Active Substance: REVEFENACIN
     Dosage: 175 PER 3 MICROGRAM PER MILLIGRAM QD (ONCE DAILY)
     Route: 055
     Dates: start: 20250516, end: 20250806
  4. YUPELRI [Suspect]
     Active Substance: REVEFENACIN
     Dosage: 175 PER 3 MICROGRAM PER MILLIGRAM QD (ONCE DAILY)
     Dates: start: 20250516, end: 20250806
  5. FORMOTEROL [Suspect]
     Active Substance: FORMOTEROL
     Indication: Product used for unknown indication
  6. FORMOTEROL [Suspect]
     Active Substance: FORMOTEROL
     Route: 065
  7. FORMOTEROL [Suspect]
     Active Substance: FORMOTEROL
     Route: 065
  8. FORMOTEROL [Suspect]
     Active Substance: FORMOTEROL
  9. BUDESONIDE [Suspect]
     Active Substance: BUDESONIDE
     Indication: Product used for unknown indication
  10. BUDESONIDE [Suspect]
     Active Substance: BUDESONIDE
     Route: 065
  11. BUDESONIDE [Suspect]
     Active Substance: BUDESONIDE
     Route: 065
  12. BUDESONIDE [Suspect]
     Active Substance: BUDESONIDE

REACTIONS (2)
  - Dyspnoea [Recovered/Resolved]
  - Dysphonia [Recovered/Resolved]

NARRATIVE: CASE EVENT DATE: 20250516
